FAERS Safety Report 13510973 (Version 2)
Quarter: 2017Q2

REPORT INFORMATION
  Report Type: Spontaneous
  Country: DE (occurrence: DE)
  Receive Date: 20170503
  Receipt Date: 20170505
  Transmission Date: 20170830
  Serious: Yes (Hospitalization)
  Sender: FDA-Public Use
  Company Number: DE-TEVA-763611GER

PATIENT
  Age: 23 Year
  Sex: Female
  Weight: 60 kg

DRUGS (6)
  1. LORAZEPAM. [Concomitant]
     Active Substance: LORAZEPAM
     Route: 048
     Dates: start: 201507, end: 201607
  2. VENLAFAXINE [Suspect]
     Active Substance: VENLAFAXINE HYDROCHLORIDE
     Indication: DEPRESSION
     Route: 048
     Dates: start: 201407, end: 201508
  3. CHLORPROTHIXEN [Concomitant]
     Active Substance: CHLORPROTHIXENE HYDROCHLORIDE
     Indication: DEPRESSION
     Route: 048
     Dates: start: 201507, end: 201508
  4. VIANI DA [Concomitant]
     Indication: ASTHMA
     Route: 055
     Dates: start: 201501
  5. MIRTAZAPIN [Concomitant]
     Active Substance: MIRTAZAPINE
     Indication: DEPRESSION
     Route: 048
     Dates: start: 201407
  6. MONTELUKAST [Concomitant]
     Active Substance: MONTELUKAST SODIUM
     Indication: ASTHMA
     Route: 048
     Dates: start: 201501

REACTIONS (3)
  - Withdrawal syndrome [Recovered/Resolved]
  - Vomiting [Recovered/Resolved]
  - Hypophagia [Recovered/Resolved]

NARRATIVE: CASE EVENT DATE: 20150813
